FAERS Safety Report 6081461-1 (Version None)
Quarter: 2009Q1

REPORT INFORMATION
  Report Type: 
  Country: None (occurrence: None)
  Receive Date: 20090213
  Receipt Date: 20090127
  Transmission Date: 20090719
  Serious: Yes (Hospitalization)
  Sender: FDA-Public Use
  Company Number: 8042467

PATIENT
  Age: 74 Year
  Sex: Male

DRUGS (2)
  1. PREDNISOLONE [Suspect]
  2. PREDNISOLONE [Suspect]
     Dosage: 10 MG 2/D

REACTIONS (18)
  - ALANINE AMINOTRANSFERASE INCREASED [None]
  - AORTIC ANEURYSM [None]
  - ASPARTATE AMINOTRANSFERASE INCREASED [None]
  - BLOOD BILIRUBIN INCREASED [None]
  - BLOOD CREATININE INCREASED [None]
  - BLOOD CULTURE POSITIVE [None]
  - BLOOD LACTATE DEHYDROGENASE INCREASED [None]
  - BLOOD PRESSURE SYSTOLIC INCREASED [None]
  - BLOOD UREA INCREASED [None]
  - CARDIAC MURMUR [None]
  - CHEST PAIN [None]
  - CHILLS [None]
  - CULTURE STOOL POSITIVE [None]
  - EAR PAIN [None]
  - GASTROENTERITIS SALMONELLA [None]
  - MYCOTIC ANEURYSM [None]
  - PYREXIA [None]
  - THYROID GLAND ABSCESS [None]
